FAERS Safety Report 13774970 (Version 40)
Quarter: 2022Q1

REPORT INFORMATION
  Report Type: Report from Study
  Country: CA (occurrence: CA)
  Receive Date: 20170720
  Receipt Date: 20220127
  Transmission Date: 20220423
  Serious: Yes (Hospitalization, Other)
  Sender: FDA-Public Use
  Company Number: CA-NOVARTISPH-PHHY2017CA105523

PATIENT
  Age: 56 Year
  Sex: Female

DRUGS (9)
  1. SANDOSTATIN LAR DEPOT [Suspect]
     Active Substance: OCTREOTIDE ACETATE
     Indication: Acromegaly
     Dosage: 20 MG, BIW
     Route: 030
     Dates: start: 20080604
  2. SANDOSTATIN LAR DEPOT [Suspect]
     Active Substance: OCTREOTIDE ACETATE
     Dosage: 20 MG, EVERY 10 DAYS
     Route: 030
  3. SANDOSTATIN LAR DEPOT [Suspect]
     Active Substance: OCTREOTIDE ACETATE
     Dosage: 20 MG, QW2
     Route: 030
  4. SANDOSTATIN LAR DEPOT [Suspect]
     Active Substance: OCTREOTIDE ACETATE
     Dosage: 20 MG, EVERY 10 DAYS
     Route: 030
     Dates: start: 20140310
  5. HYDROCHLOROTHIAZIDE [Concomitant]
     Active Substance: HYDROCHLOROTHIAZIDE
     Indication: Product used for unknown indication
     Dosage: UNK, QD
     Route: 065
  6. MS CONTIN [Concomitant]
     Active Substance: MORPHINE SULFATE
     Indication: Product used for unknown indication
     Dosage: UNK, BID
     Route: 065
  7. MORPHINE SULFATE [Concomitant]
     Active Substance: MORPHINE SULFATE
     Indication: Product used for unknown indication
     Dosage: UNK, PRN
     Route: 065
  8. ZOPICLONE [Concomitant]
     Active Substance: ZOPICLONE
     Indication: Product used for unknown indication
     Dosage: 1 DF, QD (7.5 TABLET)
     Route: 048
     Dates: start: 20210625
  9. RABEPRAZOLE SODIUM [Concomitant]
     Active Substance: RABEPRAZOLE SODIUM
     Indication: Product used for unknown indication
     Dosage: UNK, QD
     Route: 065

REACTIONS (42)
  - Colitis [Recovered/Resolved]
  - Rectal haemorrhage [Recovering/Resolving]
  - Haemorrhage [Unknown]
  - Haematochezia [Recovering/Resolving]
  - Tooth abscess [Unknown]
  - Tooth fracture [Unknown]
  - Ophthalmic herpes zoster [Recovering/Resolving]
  - Facial pain [Recovering/Resolving]
  - Eye pain [Recovering/Resolving]
  - Blood urine present [Unknown]
  - Insulin-like growth factor decreased [Unknown]
  - Urinary tract infection [Unknown]
  - Malaise [Unknown]
  - Post procedural complication [Unknown]
  - Fall [Recovering/Resolving]
  - Haematoma [Unknown]
  - Muscle strain [Unknown]
  - Contusion [Unknown]
  - Body temperature increased [Unknown]
  - Pain [Unknown]
  - Blood pressure decreased [Unknown]
  - Mucous stools [Recovering/Resolving]
  - Arthritis [Unknown]
  - Peripheral swelling [Unknown]
  - Pallor [Recovering/Resolving]
  - Nasopharyngitis [Unknown]
  - Hyperhidrosis [Recovering/Resolving]
  - Fatigue [Recovering/Resolving]
  - Back pain [Unknown]
  - Feeling hot [Unknown]
  - Pain in extremity [Unknown]
  - Blood pressure increased [Unknown]
  - Neuralgia [Unknown]
  - Insulin-like growth factor increased [Unknown]
  - Procedural pain [Unknown]
  - Asthenia [Recovering/Resolving]
  - Dizziness [Unknown]
  - Nausea [Unknown]
  - Diarrhoea [Unknown]
  - Headache [Unknown]
  - Arthralgia [Recovering/Resolving]
  - Inappropriate schedule of product administration [Unknown]

NARRATIVE: CASE EVENT DATE: 20080604
